FAERS Safety Report 17889807 (Version 1)
Quarter: 2020Q2

REPORT INFORMATION
  Report Type: Spontaneous
  Country: US (occurrence: US)
  Receive Date: 20200612
  Receipt Date: 20200612
  Transmission Date: 20200714
  Serious: No
  Sender: FDA-Public Use
  Company Number: None

PATIENT
  Age: 63 Year
  Sex: Male
  Weight: 78.75 kg

DRUGS (1)
  1. NP THYROID [Suspect]
     Active Substance: LEVOTHYROXINE\LIOTHYRONINE
     Indication: HYPOTHYROIDISM
     Dosage: ?          QUANTITY:90 CAPSULE(S);?
     Route: 048

REACTIONS (4)
  - Fatigue [None]
  - Taste disorder [None]
  - Parosmia [None]
  - Weight decreased [None]

NARRATIVE: CASE EVENT DATE: 20200427
